FAERS Safety Report 10343512 (Version 3)
Quarter: 2014Q3

REPORT INFORMATION
  Report Type: Report from Study
  Country: FR (occurrence: FR)
  Receive Date: 20140725
  Receipt Date: 20140815
  Transmission Date: 20150326
  Serious: Yes (Death, Congenital Anomaly)
  Sender: FDA-Public Use
  Company Number: FR-ABBVIE-14P-056-1263396-00

PATIENT

DRUGS (2)
  1. COMBIVIR [Suspect]
     Active Substance: LAMIVUDINE\ZIDOVUDINE
     Indication: MATERNAL EXPOSURE TIMING UNSPECIFIED
     Route: 064
  2. KALETRA [Suspect]
     Active Substance: LOPINAVIR\RITONAVIR
     Indication: MATERNAL EXPOSURE TIMING UNSPECIFIED
     Route: 064

REACTIONS (5)
  - Low set ears [Unknown]
  - Abortion spontaneous [Fatal]
  - Bone disorder [Unknown]
  - Foetal exposure during pregnancy [Unknown]
  - Dysmorphism [Unknown]
